FAERS Safety Report 16744558 (Version 1)
Quarter: 2019Q3

REPORT INFORMATION
  Report Type: Spontaneous
  Country: US (occurrence: US)
  Receive Date: 20190827
  Receipt Date: 20190827
  Transmission Date: 20191005
  Serious: Yes (Hospitalization, Other)
  Sender: FDA-Public Use
  Company Number: US-SA-2019SA237683

PATIENT
  Age: 71 Year
  Sex: Male
  Weight: 76.2 kg

DRUGS (15)
  1. ASPIRIN [ACETYLSALICYLIC ACID] [Concomitant]
     Active Substance: ASPIRIN
     Dosage: UNK
  2. LIPITOR [Concomitant]
     Active Substance: ATORVASTATIN CALCIUM
  3. NEXIUM [Concomitant]
     Active Substance: ESOMEPRAZOLE MAGNESIUM
     Dosage: UNK
  4. GARLIC [ALLIUM SATIVUM] [Concomitant]
     Active Substance: GARLIC
  5. STARLIX [Concomitant]
     Active Substance: NATEGLINIDE
  6. METFORMIN [Concomitant]
     Active Substance: METFORMIN HYDROCHLORIDE
     Dosage: UNK
  7. FUROSEMIDE. [Concomitant]
     Active Substance: FUROSEMIDE
     Dosage: UNK
  8. PRALUENT [Suspect]
     Active Substance: ALIROCUMAB
     Indication: TYPE V HYPERLIPIDAEMIA
     Dosage: 75 MG, QOW
     Route: 058
     Dates: start: 20181206
  9. ATORVASTATIN [Concomitant]
     Active Substance: ATORVASTATIN
     Dosage: UNK
  10. EVOLOCUMAB [Suspect]
     Active Substance: EVOLOCUMAB
     Indication: DYSLIPIDAEMIA
     Dosage: 140 MG, QOW
     Route: 058
     Dates: start: 20171221
  11. CARVEDIOL [Concomitant]
     Active Substance: CARVEDILOL
     Dosage: UNK
  12. CLARITIN [CLARITHROMYCIN] [Concomitant]
     Active Substance: CLARITHROMYCIN
  13. ZETIA [Concomitant]
     Active Substance: EZETIMIBE
     Dosage: UNK
  14. NIACIN. [Concomitant]
     Active Substance: NIACIN
  15. LISINOPRIL. [Concomitant]
     Active Substance: LISINOPRIL

REACTIONS (8)
  - Dyspnoea exertional [Unknown]
  - Oedema peripheral [Unknown]
  - Dizziness [Unknown]
  - Wheezing [Unknown]
  - Drug hypersensitivity [Unknown]
  - Pneumonia [Unknown]
  - Hypotension [Unknown]
  - Cough [Recovered/Resolved]

NARRATIVE: CASE EVENT DATE: 20190611
